FAERS Safety Report 22156237 (Version 1)
Quarter: 2023Q1

REPORT INFORMATION
  Report Type: Spontaneous
  Country: US (occurrence: None)
  Receive Date: 20230329
  Receipt Date: 20230329
  Transmission Date: 20230418
  Serious: No
  Sender: FDA-Public Use
  Company Number: None

PATIENT
  Age: 80 Year
  Sex: Female

DRUGS (3)
  1. HUMIRA [Suspect]
     Active Substance: ADALIMUMAB
     Indication: Rheumatoid arthritis
     Dosage: FREQUENCY : EVERY OTHER WEEK;?
     Route: 058
     Dates: start: 202109
  2. SUMATRIPTAN SUCCINATE [Concomitant]
  3. TOPIRAMATE [Concomitant]

REACTIONS (4)
  - Malaise [None]
  - Headache [None]
  - Illness [None]
  - Hallucination [None]
